FAERS Safety Report 5246513-4 (Version None)
Quarter: 2007Q1

REPORT INFORMATION
  Report Type: 
  Country: None (occurrence: None)
  Receive Date: 20070226
  Receipt Date: 20070222
  Transmission Date: 20070707
  Serious: Yes (Hospitalization)
  Sender: FDA-Public Use
  Company Number: JP-BAYER-200611273BYL

PATIENT
  Age: 78 Year
  Sex: Female

DRUGS (7)
  1. ADALAT [Suspect]
     Indication: HYPERTENSION
     Dosage: TOTAL DAILY DOSE: 10 MG  UNIT DOSE: 10 MG
     Route: 048
     Dates: start: 20061130, end: 20061130
  2. PARIET [Suspect]
     Dosage: TOTAL DAILY DOSE: 10 MG  UNIT DOSE: 10 MG
     Route: 048
     Dates: start: 20061130, end: 20061207
  3. CYTOTEC [Concomitant]
     Dosage: TOTAL DAILY DOSE: 100 MG  UNIT DOSE: 100 MG
     Route: 048
     Dates: start: 20061130, end: 20061207
  4. NORVASC [Concomitant]
     Route: 048
     Dates: start: 20061203, end: 20061207
  5. SELBEX [Concomitant]
     Route: 048
  6. EURODIN [Concomitant]
     Route: 048
  7. MAP [Concomitant]
     Route: 040
     Dates: start: 20061130

REACTIONS (1)
  - ERYTHEMA MULTIFORME [None]
